FAERS Safety Report 5320740-X (Version None)
Quarter: 2007Q2

REPORT INFORMATION
  Report Type: 
  Country: None (occurrence: None)
  Receive Date: 20070509
  Receipt Date: 20070504
  Transmission Date: 20071010
  Serious: Yes (Life-Threatening)
  Sender: FDA-Public Use
  Company Number: US-SHR-US-2007-016046

PATIENT
  Age: 44 Year
  Sex: Female

DRUGS (9)
  1. BETAFERON (SH Y 579E) [Suspect]
     Indication: RELAPSING-REMITTING MULTIPLE SCLEROSIS
     Dosage: 250 UG OR 500 UG EVERY 2D
     Route: 058
     Dates: start: 20040212
  2. EXCEDRIN (MIGRAINE) [Concomitant]
     Dosage: 250 MG, AS REQ'D
     Route: 048
     Dates: start: 20031201
  3. MECLIZINE [Concomitant]
     Indication: DIZZINESS
     Dosage: 25 MG, AS REQ'D
     Route: 048
     Dates: start: 20031117, end: 20031121
  4. ACETAMINOPHEN [Concomitant]
     Indication: PAIN PROPHYLAXIS
     Dosage: 1000 MG, AS REQ'D
     Route: 048
     Dates: start: 20040824
  5. ACETAMINOPHEN [Concomitant]
     Indication: PROPHYLAXIS
     Dosage: 1000 MG, EVERY 2D
     Route: 048
     Dates: start: 20040212, end: 20040824
  6. BUPROPION HYDROCHLORIDE [Concomitant]
     Indication: SMOKING CESSATION THERAPY
     Dosage: 150 MG, 2X/DAY
     Route: 048
     Dates: start: 20041029, end: 20041121
  7. SUMATRIPTAN SUCCINATE [Concomitant]
     Dosage: 25 MG, AS REQ'D
     Route: 048
     Dates: start: 20041118, end: 20041101
  8. CEPHALEXIN [Concomitant]
     Indication: BREAST CELLULITIS
     Dosage: 250 MG, 2X/DAY
     Route: 048
     Dates: start: 20041112, end: 20041121
  9. NORETHINDRONE [Concomitant]
     Indication: ORAL CONTRACEPTION
     Dosage: 1 TAB(S), 1X/DAY
     Route: 048
     Dates: start: 20040115, end: 20040301

REACTIONS (1)
  - ANAL CANCER [None]
